FAERS Safety Report 5470875-6 (Version None)
Quarter: 2007Q3

REPORT INFORMATION
  Report Type: 
  Country: None (occurrence: None)
  Receive Date: 20070928
  Receipt Date: 20070927
  Transmission Date: 20080115
  Serious: Yes (Other)
  Sender: FDA-Public Use
  Company Number: A0684755A

PATIENT
  Sex: Female

DRUGS (7)
  1. NICODERM [Suspect]
     Indication: SMOKING CESSATION THERAPY
     Dosage: 1PAT PER DAY
     Route: 062
     Dates: start: 20070101, end: 20070101
  2. PREDNISONE [Concomitant]
  3. GEN-MEDROXY [Concomitant]
     Indication: MENOPAUSE
  4. PAXIL [Concomitant]
     Indication: DEPRESSION
  5. DIAZEPAM [Concomitant]
     Indication: DEPRESSION
  6. SEROQUEL [Concomitant]
  7. ALTACE [Concomitant]

REACTIONS (4)
  - CONVULSION [None]
  - COORDINATION ABNORMAL [None]
  - ELECTROLYTE IMBALANCE [None]
  - HYPERHIDROSIS [None]
